FAERS Safety Report 23792687 (Version 1)
Quarter: 2024Q2

REPORT INFORMATION
  Report Type: Spontaneous
  Country: JP (occurrence: JP)
  Receive Date: 20240429
  Receipt Date: 20240429
  Transmission Date: 20240716
  Serious: No
  Sender: FDA-Public Use
  Company Number: JP-ABBVIE-5735693

PATIENT
  Sex: Female

DRUGS (2)
  1. ASENAPINE MALEATE [Suspect]
     Active Substance: ASENAPINE MALEATE
     Indication: Product used for unknown indication
     Route: 060
     Dates: start: 202403
  2. HALOPERIDOL [Concomitant]
     Active Substance: HALOPERIDOL
     Indication: Product used for unknown indication

REACTIONS (5)
  - Insomnia [Unknown]
  - Choking [Unknown]
  - Intentional overdose [Unknown]
  - Akathisia [Unknown]
  - Chest discomfort [Unknown]

NARRATIVE: CASE EVENT DATE: 20240101
